FAERS Safety Report 14951253 (Version 1)
Quarter: 2018Q2

REPORT INFORMATION
  Report Type: Spontaneous
  Country: US (occurrence: US)
  Receive Date: 20180509
  Receipt Date: 20180509
  Transmission Date: 20180711
  Serious: Yes (Life-Threatening, Hospitalization, Disabling)
  Sender: FDA-Public Use
  Company Number: None

PATIENT
  Age: 40 Year
  Sex: Female
  Weight: 65.77 kg

DRUGS (12)
  1. PREDNISONE. [Concomitant]
     Active Substance: PREDNISONE
  2. VITAMIN D [Concomitant]
     Active Substance: CHOLECALCIFEROL
  3. OMEPHRAZOLE [Concomitant]
  4. FEURMOSEMIDE [Concomitant]
  5. MIRENA [Suspect]
     Active Substance: LEVONORGESTREL
     Dates: start: 20080409, end: 20110509
  6. METHADONE [Concomitant]
     Active Substance: METHADONE HYDROCHLORIDE
  7. KLOR KON [Concomitant]
  8. FOLIC ACID. [Concomitant]
     Active Substance: FOLIC ACID
  9. PROBIOTIC [Concomitant]
     Active Substance: PROBIOTICS NOS
  10. TRASADONE [Concomitant]
  11. PROMETHAZINE [Concomitant]
     Active Substance: PROMETHAZINE\PROMETHAZINE HYDROCHLORIDE
  12. METHOTREXATE. [Concomitant]
     Active Substance: METHOTREXATE

REACTIONS (11)
  - Irritable bowel syndrome [None]
  - Fibromyalgia [None]
  - Hepatic neoplasm [None]
  - Mixed connective tissue disease [None]
  - Scleroderma [None]
  - Impaired gastric emptying [None]
  - Cardiac valve disease [None]
  - Polymyositis [None]
  - Rheumatoid arthritis [None]
  - Gastrooesophageal reflux disease [None]
  - Neuropathy peripheral [None]

NARRATIVE: CASE EVENT DATE: 20180423
